FAERS Safety Report 9067041 (Version 1)
Quarter: 2013Q1

REPORT INFORMATION
  Report Type: Report from Study
  Country: US (occurrence: US)
  Receive Date: 20130131
  Receipt Date: 20130131
  Transmission Date: 20140127
  Serious: No
  Sender: FDA-Public Use
  Company Number: US-ABBOTT-12P-163-0999154-00

PATIENT
  Age: 50 Year
  Sex: Male

DRUGS (8)
  1. HUMIRA [Suspect]
     Indication: PSORIASIS
  2. HUMIRA [Suspect]
  3. METHOTREXATE [Concomitant]
     Indication: ARTHRITIS
  4. AMBIEN [Concomitant]
     Indication: INSOMNIA
     Dosage: ONE PILL AT NIGHT, AS NEEDED
  5. BYSTOLIC [Concomitant]
     Indication: HYPERTENSION
     Dosage: 5 MG DAILY
  6. LORTAB [Concomitant]
     Indication: BLOOD PRESSURE
     Dosage: 40 MG DAILY
  7. LOVASTATIN [Concomitant]
     Indication: BLOOD CHOLESTEROL
     Dosage: 10 MG DAILY
  8. FOLIC ACID [Concomitant]
     Indication: PRODUCT USED FOR UNKNOWN INDICATION
     Dosage: DAILY

REACTIONS (4)
  - Pain [Not Recovered/Not Resolved]
  - Headache [Unknown]
  - Asthenia [Unknown]
  - Neck pain [Unknown]
